FAERS Safety Report 6339648-6 (Version None)
Quarter: 2009Q3

REPORT INFORMATION
  Report Type: 
  Country: None (occurrence: None)
  Receive Date: 20090903
  Receipt Date: 20090824
  Transmission Date: 20100115
  Serious: Yes (Other)
  Sender: FDA-Public Use
  Company Number: US-BAXTER-2009BH013169

PATIENT
  Age: 52 Year
  Sex: Female

DRUGS (1)
  1. DIANEAL [Suspect]
     Indication: PERITONEAL DIALYSIS
     Route: 033
     Dates: start: 20030601

REACTIONS (5)
  - ABDOMINAL DISTENSION [None]
  - BLOODY PERITONEAL EFFLUENT [None]
  - DISCOMFORT [None]
  - PERITONITIS [None]
  - PROCEDURAL PAIN [None]
